FAERS Safety Report 5312219-6 (Version None)
Quarter: 2007Q2

REPORT INFORMATION
  Report Type: 
  Country: None (occurrence: None)
  Receive Date: 20070430
  Receipt Date: 20060811
  Transmission Date: 20071010
  Serious: No
  Sender: FDA-Public Use
  Company Number: 2006UW16100

PATIENT
  Age: 81 Year
  Sex: Male
  Weight: 68 kg

DRUGS (4)
  1. NEXIUM [Suspect]
     Indication: GASTROOESOPHAGEAL REFLUX DISEASE
     Route: 048
     Dates: start: 20010101
  2. TOPROL-XL [Concomitant]
     Route: 048
  3. LANOXIN [Concomitant]
  4. WARFARIN SODIUM [Concomitant]
     Dosage: 2.5  MG EVEN DAYS/5 MG ODD DAYS

REACTIONS (2)
  - DRUG EFFECT DECREASED [None]
  - DYSPHONIA [None]
